FAERS Safety Report 8523992-8 (Version None)
Quarter: 2012Q2

REPORT INFORMATION
  Report Type: 
  Country: None (occurrence: None)
  Receive Date: 20120406
  Receipt Date: 20110920
  Transmission Date: 20120825
  Serious: Yes (Hospitalization)
  Sender: FDA-Public Use
  Company Number: US-CYPR-2011-000065

PATIENT
  Sex: Male
  Weight: 97.5234 kg

DRUGS (12)
  1. CLOPIDOGREL [Suspect]
     Indication: ANTIPLATELET THERAPY
     Dosage: (75 MG QD ORAL) ; (75 MG QD ORAL)
     Route: 048
     Dates: start: 20110430, end: 20110829
  2. CLOPIDOGREL [Suspect]
     Indication: ANTIPLATELET THERAPY
     Dosage: (75 MG QD ORAL) ; (75 MG QD ORAL)
     Route: 048
     Dates: start: 20110907
  3. LISINOPRIL [Concomitant]
  4. CYMBALTA [Concomitant]
  5. GLIMEPIRIDE [Concomitant]
  6. LIALDA [Concomitant]
  7. AMITRIPTYLINE HYDROCHLORIDE [Concomitant]
  8. CYPHER STENT [Concomitant]
  9. SIMVASTATIN [Concomitant]
  10. ASPIRIN [Suspect]
     Indication: CORONARY ARTERY DISEASE
     Dosage: (81 MG QD ORAL) ; (325 MG QD ORAL)
     Route: 048
     Dates: start: 20101023
  11. ASPIRIN [Suspect]
     Indication: CORONARY ARTERY DISEASE
     Dosage: (81 MG QD ORAL) ; (325 MG QD ORAL)
     Route: 048
     Dates: start: 20100514, end: 20101022
  12. GABAPENTIN [Concomitant]

REACTIONS (1)
  - CHOLECYSTITIS [None]
